FAERS Safety Report 4504638-2 (Version None)
Quarter: 2004Q4

REPORT INFORMATION
  Report Type: 
  Country: None (occurrence: None)
  Receive Date: 20041118
  Receipt Date: 20041116
  Transmission Date: 20050328
  Serious: Yes (Death)
  Sender: FDA-Public Use
  Company Number: US-JNJFOC-20040800557

PATIENT
  Age: 60 Year
  Sex: Female
  Weight: 56.25 kg

DRUGS (7)
  1. RISPERDAL [Suspect]
     Indication: DEPRESSION
     Route: 049
     Dates: start: 20040305, end: 20040314
  2. RISPERDAL [Suspect]
     Route: 049
     Dates: start: 20040305, end: 20040314
  3. PAXIL [Suspect]
     Indication: DEPRESSION
     Route: 049
     Dates: start: 20040305
  4. DIGOXIN [Concomitant]
  5. CARDIZEM [Concomitant]
  6. PREDNISONE [Concomitant]
  7. LOVENOX [Concomitant]

REACTIONS (7)
  - CANDIDURIA [None]
  - CARDIO-RESPIRATORY ARREST [None]
  - DRUG INTERACTION [None]
  - LUNG INFECTION PSEUDOMONAL [None]
  - METABOLIC ENCEPHALOPATHY [None]
  - PANCYTOPENIA [None]
  - STAPHYLOCOCCAL BACTERAEMIA [None]
